FAERS Safety Report 14108074 (Version 1)
Quarter: 2017Q4

REPORT INFORMATION
  Report Type: Spontaneous
  Country: US (occurrence: US)
  Receive Date: 20171019
  Receipt Date: 20171019
  Transmission Date: 20180321
  Serious: No
  Sender: FDA-Public Use
  Company Number: US-LPDUSPRD-20160776

PATIENT
  Sex: Male

DRUGS (1)
  1. HYDROXYZINE HCL INJECTION, USP (4201-25) [Suspect]
     Active Substance: HYDROXYZINE HYDROCHLORIDE
     Dosage: 25 MG DILUTED IN SOLUTION
     Route: 042

REACTIONS (1)
  - Incorrect route of drug administration [Unknown]
